FAERS Safety Report 7922535 (Version 2)
Quarter: 2013Q4

REPORT INFORMATION
  Report Type: Spontaneous
  Country: US (occurrence: US)
  Receive Date: 20110429
  Receipt Date: 20131218
  Transmission Date: 20140711
  Serious: No
  Sender: FDA-Public Use
  Company Number: US-ASTRAZENECA-2010SE36531

PATIENT
  Age: 66 Year
  Sex: Female
  Weight: 64.4 kg

DRUGS (11)
  1. NEXIUM [Suspect]
     Indication: GASTROOESOPHAGEAL REFLUX DISEASE
     Route: 048
     Dates: start: 2001
  2. NEXIUM [Suspect]
     Indication: GASTROOESOPHAGEAL REFLUX DISEASE
     Route: 048
     Dates: start: 2001
  3. NEXIUM [Suspect]
     Indication: GASTROOESOPHAGEAL REFLUX DISEASE
     Route: 048
  4. NEXIUM [Suspect]
     Indication: GASTROOESOPHAGEAL REFLUX DISEASE
     Route: 048
  5. NEXIUM [Suspect]
     Indication: GASTROOESOPHAGEAL REFLUX DISEASE
     Route: 048
     Dates: start: 2003
  6. NEXIUM [Suspect]
     Indication: GASTROOESOPHAGEAL REFLUX DISEASE
     Route: 048
     Dates: start: 2003
  7. CALCITRATE [Concomitant]
     Dosage: TWICE DAILY
  8. VITAMIN D [Concomitant]
     Dosage: 1000U ONCE DAILY
  9. PRENATAL VITAMIN [Concomitant]
  10. SUPPLEMENTS [Concomitant]
  11. MEDICATIONS [Concomitant]

REACTIONS (13)
  - Osteoporosis [Unknown]
  - Renal disorder [Unknown]
  - Rheumatoid arthritis [Unknown]
  - Neuropathy peripheral [Unknown]
  - Malabsorption [Unknown]
  - Vitamin B12 deficiency [Unknown]
  - Hyperparathyroidism [Unknown]
  - Vitamin D decreased [Unknown]
  - Osteopenia [Unknown]
  - Back disorder [Unknown]
  - Scoliosis [Not Recovered/Not Resolved]
  - Body height decreased [Unknown]
  - Malabsorption [Unknown]
